FAERS Safety Report 10777692 (Version 3)
Quarter: 2016Q2

REPORT INFORMATION
  Report Type: Spontaneous
  Country: US (occurrence: US)
  Receive Date: 20150209
  Receipt Date: 20160415
  Transmission Date: 20160815
  Serious: Yes (Other)
  Sender: FDA-Public Use
  Company Number: US-GLAXOSMITHKLINE-US2014034906

PATIENT
  Sex: Female

DRUGS (7)
  1. LAMICTAL XR [Suspect]
     Active Substance: LAMOTRIGINE
     Indication: EPILEPSY
  2. ZONEGRAN [Suspect]
     Active Substance: ZONISAMIDE
     Indication: EPILEPSY
  3. ZONEGRAN [Suspect]
     Active Substance: ZONISAMIDE
     Indication: TREMOR
  4. PROGESTERONE. [Concomitant]
     Active Substance: PROGESTERONE
  5. LAMICTAL XR [Suspect]
     Active Substance: LAMOTRIGINE
     Indication: SEIZURE
     Dosage: 200 MG, BID
     Route: 048
     Dates: start: 2010
  6. VIMPAT [Concomitant]
     Active Substance: LACOSAMIDE
  7. ZONEGRAN [Suspect]
     Active Substance: ZONISAMIDE
     Indication: SEIZURE

REACTIONS (6)
  - Dyskinesia [Not Recovered/Not Resolved]
  - Fatigue [Recovered/Resolved]
  - Muscle twitching [Not Recovered/Not Resolved]
  - Gallbladder operation [Unknown]
  - Swelling [Recovered/Resolved]
  - Nausea [Recovered/Resolved]

NARRATIVE: CASE EVENT DATE: 2011
